FAERS Safety Report 24376501 (Version 2)
Quarter: 2024Q4

REPORT INFORMATION
  Report Type: Spontaneous
  Country: PL (occurrence: PL)
  Receive Date: 20240930
  Receipt Date: 20241230
  Transmission Date: 20250114
  Serious: Yes (Hospitalization, Other)
  Sender: REGENERON
  Company Number: PL-BAYER-2024A137097

PATIENT
  Age: 80 Year
  Sex: Male

DRUGS (1)
  1. EYLEA [Suspect]
     Active Substance: AFLIBERCEPT
     Indication: Age-related macular degeneration
     Dosage: UNK, 40 MG/ML

REACTIONS (4)
  - Visual impairment [Unknown]
  - Vitreous disorder [Unknown]
  - Endophthalmitis [Unknown]
  - Eye inflammation [Unknown]
